FAERS Safety Report 11634524 (Version 1)
Quarter: 2015Q4

REPORT INFORMATION
  Report Type: Other
  Country: DE (occurrence: DE)
  Receive Date: 20151015
  Receipt Date: 20151015
  Transmission Date: 20160304
  Serious: Yes (Other)
  Sender: FDA-Public Use
  Company Number: DE-MYLANLABS-2015M1034119

PATIENT

DRUGS (2)
  1. LAMOTRIGIN 25MG [Suspect]
     Active Substance: LAMOTRIGINE
     Dosage: 25 MG, UNK
  2. LEVETIRACETAM. [Concomitant]
     Active Substance: LEVETIRACETAM
     Dosage: 3000 MG, UNK

REACTIONS (20)
  - Blepharitis [Unknown]
  - Photosensitivity reaction [Unknown]
  - Pruritus [Unknown]
  - Headache [Unknown]
  - Salivary hypersecretion [Unknown]
  - Dizziness [Unknown]
  - Pharyngitis [Unknown]
  - Cough [Unknown]
  - Dysphagia [Unknown]
  - Aggression [Unknown]
  - Diarrhoea [Unknown]
  - Eye pruritus [Unknown]
  - Skin haemorrhage [Unknown]
  - Tremor [Unknown]
  - Fatigue [Unknown]
  - Nuchal rigidity [Unknown]
  - Arthralgia [Unknown]
  - Back pain [Unknown]
  - Irritability [Unknown]
  - Influenza like illness [Unknown]
